FAERS Safety Report 25841528 (Version 1)
Quarter: 2025Q3

REPORT INFORMATION
  Report Type: Spontaneous
  Country: US (occurrence: None)
  Receive Date: 20250923
  Receipt Date: 20250923
  Transmission Date: 20251020
  Serious: Yes (unspecified)
  Sender: FDA-CTU
  Company Number: None

PATIENT
  Age: 18 Year
  Sex: Female
  Weight: 37.35 kg

DRUGS (2)
  1. PANOXYL ACNE CREAMY WASH BENZOYL PEROXIDE [Suspect]
     Active Substance: BENZOYL PEROXIDE
     Indication: Acne
     Dosage: OTHER STRENGTH : 10;?OTHER QUANTITY : 1 DROP(S);?FREQUENCY : AT BEDTIME;?
     Route: 061
     Dates: start: 20250811, end: 20250905
  2. IBUPROFEN [Concomitant]
     Active Substance: IBUPROFEN

REACTIONS (5)
  - Sensitive skin [None]
  - Acne [None]
  - Pain of skin [None]
  - Product advertising issue [None]
  - Condition aggravated [None]

NARRATIVE: CASE EVENT DATE: 20250811
